FAERS Safety Report 13522230 (Version 1)
Quarter: 2017Q2

REPORT INFORMATION
  Report Type: Report from Study
  Country: IN (occurrence: US)
  Receive Date: 20170508
  Receipt Date: 20170508
  Transmission Date: 20170830
  Serious: Yes (Other)
  Sender: FDA-Public Use
  Company Number: IN-ROCHE-1926023

PATIENT

DRUGS (10)
  1. 5-FLUOROURACIL [Suspect]
     Active Substance: FLUOROURACIL
     Indication: NASAL SINUS CANCER
     Route: 065
  2. GEMCITABINE [Suspect]
     Active Substance: GEMCITABINE\GEMCITABINE HYDROCHLORIDE
     Indication: NASAL SINUS CANCER
     Route: 065
  3. METHOTREXATE. [Suspect]
     Active Substance: METHOTREXATE
     Indication: NASAL SINUS CANCER
     Route: 065
  4. ADRIAMYCIN [Suspect]
     Active Substance: DOXORUBICIN HYDROCHLORIDE
     Indication: NASAL SINUS CANCER
     Route: 065
  5. CETUXIMAB. [Suspect]
     Active Substance: CETUXIMAB
     Indication: NASAL SINUS CANCER
     Route: 065
  6. CISPLATIN. [Suspect]
     Active Substance: CISPLATIN
     Indication: NASAL SINUS CANCER
     Route: 065
  7. CARBOPLATIN. [Suspect]
     Active Substance: CARBOPLATIN
     Indication: NASAL SINUS CANCER
     Route: 065
  8. PACLITAXEL. [Suspect]
     Active Substance: PACLITAXEL
     Indication: NASAL SINUS CANCER
     Route: 065
  9. ETOPOSIDE. [Suspect]
     Active Substance: ETOPOSIDE
     Indication: NASAL SINUS CANCER
     Route: 065
  10. CAPECITABINE. [Suspect]
     Active Substance: CAPECITABINE
     Indication: NASAL SINUS CANCER
     Route: 065

REACTIONS (10)
  - Renal failure [Unknown]
  - Febrile neutropenia [Unknown]
  - Rash maculo-papular [Unknown]
  - Mucosal inflammation [Unknown]
  - Deafness neurosensory [Unknown]
  - Ototoxicity [Unknown]
  - Neuropathy peripheral [Unknown]
  - Dehydration [Unknown]
  - Gastrointestinal toxicity [Unknown]
  - Neutropenia [Unknown]
